FAERS Safety Report 17826967 (Version 2)
Quarter: 2020Q2

REPORT INFORMATION
  Report Type: Spontaneous
  Country: US (occurrence: US)
  Receive Date: 20200527
  Receipt Date: 20200605
  Transmission Date: 20200714
  Serious: No
  Sender: FDA-Public Use
  Company Number: US-AMGEN-USASP2020080552

PATIENT

DRUGS (1)
  1. ENBREL [Suspect]
     Active Substance: ETANERCEPT
     Indication: EXPOSURE DURING PREGNANCY
     Dosage: 50 MILLIGRAM, QWK
     Route: 064
     Dates: start: 2019

REACTIONS (3)
  - Somnolence [Unknown]
  - Maternal exposure during pregnancy [Unknown]
  - Premature baby [Unknown]
